FAERS Safety Report 25603728 (Version 1)
Quarter: 2025Q3

REPORT INFORMATION
  Report Type: Spontaneous
  Country: JP (occurrence: JP)
  Receive Date: 20250725
  Receipt Date: 20250725
  Transmission Date: 20251021
  Serious: Yes (Other)
  Sender: TAKEDA
  Company Number: JP-TAKEDA-2025TJP007486

PATIENT
  Age: 8 Decade

DRUGS (1)
  1. FRUZAQLA [Suspect]
     Active Substance: FRUQUINTINIB
     Indication: Colon cancer

REACTIONS (5)
  - Oedema [Unknown]
  - Malaise [Unknown]
  - Fatigue [Unknown]
  - Hypertension [Unknown]
  - Proteinuria [Unknown]
